FAERS Safety Report 9426502 (Version 1)
Quarter: 2013Q3

REPORT INFORMATION
  Report Type: Spontaneous
  Country: US (occurrence: US)
  Receive Date: 20130730
  Receipt Date: 20130730
  Transmission Date: 20140515
  Serious: Yes (Hospitalization)
  Sender: FDA-Public Use
  Company Number: US-JNJFOC-20130711992

PATIENT
  Age: 48 Year
  Sex: Male
  Weight: 137.03 kg

DRUGS (19)
  1. FENTANYL [Suspect]
     Indication: BACK PAIN
     Dosage: 3 FENTANYL PATCHES
     Route: 062
  2. FENTANYL [Suspect]
     Indication: BACK PAIN
     Route: 062
     Dates: start: 2008, end: 20121012
  3. PLACEBO [Suspect]
     Indication: HYPERCHOLESTEROLAEMIA
     Route: 058
  4. OXYGEN [Concomitant]
     Indication: SLEEP APNOEA SYNDROME
     Route: 045
  5. ESCITALOPRAM [Concomitant]
     Indication: DEPRESSION
     Route: 048
     Dates: start: 2008
  6. CITALOPRAM [Concomitant]
     Indication: DEPRESSION
     Route: 048
     Dates: start: 201206
  7. BACLOFEN [Concomitant]
     Indication: MUSCLE SPASMS
     Route: 048
     Dates: start: 2008
  8. DIAZEPAM [Concomitant]
     Indication: MUSCLE SPASMS
     Route: 048
     Dates: start: 20120919
  9. DARIFENACIN [Concomitant]
     Indication: BLADDER SPASM
     Route: 048
     Dates: start: 2008
  10. FUROSEMIDE [Concomitant]
     Indication: OEDEMA PERIPHERAL
     Route: 048
     Dates: start: 2008
  11. HYDROCODONE  BITARTRATE/ACETAMINOPHEN [Concomitant]
     Indication: BACK PAIN
     Route: 048
     Dates: start: 2008
  12. GABAPENTIN [Concomitant]
     Indication: BACK PAIN
     Route: 048
     Dates: start: 20120628
  13. ASPIRIN [Concomitant]
     Indication: CARDIAC DISORDER
     Route: 048
     Dates: start: 2009
  14. VITAMIN C [Concomitant]
     Indication: NUTRITIONAL SUPPLEMENTATION
     Route: 048
     Dates: start: 2009
  15. IRON [Concomitant]
     Indication: NUTRITIONAL SUPPLEMENTATION
     Route: 048
     Dates: start: 2009
  16. POTASSIUM [Concomitant]
     Indication: NUTRITIONAL SUPPLEMENTATION
     Route: 048
     Dates: start: 2009
  17. DOCUSATE SODIUM [Concomitant]
     Indication: CONSTIPATION
     Route: 048
     Dates: start: 2009
  18. PHENAZOPYRIDINE [Concomitant]
     Indication: URINARY TRACT INFECTION
     Route: 048
     Dates: start: 2010
  19. SIMVASTATIN [Concomitant]
     Indication: HYPERCHOLESTEROLAEMIA
     Route: 048
     Dates: start: 2009

REACTIONS (5)
  - Pneumonia [Recovered/Resolved]
  - Hypercapnia [Recovered/Resolved]
  - Drug abuse [Unknown]
  - Overdose [Unknown]
  - Hyperkalaemia [Unknown]
